FAERS Safety Report 7624858-8 (Version None)
Quarter: 2011Q3

REPORT INFORMATION
  Report Type: 
  Country: None (occurrence: None)
  Receive Date: 20110720
  Receipt Date: 20110708
  Transmission Date: 20111222
  Serious: Yes (Hospitalization)
  Sender: FDA-Public Use
  Company Number: DE-GENENTECH-321722

PATIENT
  Sex: Female

DRUGS (4)
  1. PREDNISOLONE [Suspect]
     Indication: PRODUCT USED FOR UNKNOWN INDICATION
     Dosage: UNK
     Route: 065
  2. MABTHERA [Suspect]
     Dosage: UNK
     Route: 042
     Dates: start: 20071201
  3. MABTHERA [Suspect]
     Indication: PRODUCT USED FOR UNKNOWN INDICATION
     Dosage: UNK
     Route: 042
     Dates: start: 20070501
  4. MABTHERA [Suspect]
     Dosage: UNK
     Route: 042
     Dates: start: 20090901

REACTIONS (1)
  - DELIRIUM [None]
